FAERS Safety Report 7353075-4 (Version None)
Quarter: 2011Q1

REPORT INFORMATION
  Report Type: 
  Country: None (occurrence: None)
  Receive Date: 20110315
  Receipt Date: 20110310
  Transmission Date: 20110831
  Serious: Yes (Hospitalization)
  Sender: FDA-Public Use
  Company Number: B0705299A

PATIENT
  Sex: Female

DRUGS (9)
  1. HYPERIUM [Concomitant]
     Route: 065
  2. AUGMENTIN [Suspect]
     Route: 048
     Dates: start: 20101001, end: 20101001
  3. PLAVIX [Concomitant]
     Route: 065
  4. NEXIUM [Concomitant]
     Route: 065
  5. TAHOR [Concomitant]
     Route: 065
  6. AMLOR [Concomitant]
     Route: 065
  7. FUROSEMIDE [Concomitant]
     Route: 065
  8. NEBIVOLOL [Concomitant]
     Route: 065
  9. INSULIN [Concomitant]
     Route: 065

REACTIONS (3)
  - RENAL FAILURE ACUTE [None]
  - RENAL TUBULAR DISORDER [None]
  - URTICARIA [None]
